FAERS Safety Report 25403570 (Version 1)
Quarter: 2025Q2

REPORT INFORMATION
  Report Type: Spontaneous
  Country: US (occurrence: US)
  Receive Date: 20250605
  Receipt Date: 20250605
  Transmission Date: 20250716
  Serious: No
  Sender: GLAXOSMITHKLINE
  Company Number: US-GSK-US2025068797

PATIENT
  Sex: Male

DRUGS (1)
  1. TRELEGY ELLIPTA [Suspect]
     Active Substance: FLUTICASONE FUROATE\UMECLIDINIUM BROMIDE\VILANTEROL TRIFENATATE
     Indication: Chronic obstructive pulmonary disease
     Dosage: 1 PUFF(S), BID, 200/62.5/25MCG
     Route: 055
     Dates: start: 20250505

REACTIONS (4)
  - Wrong technique in device usage process [Unknown]
  - Overdose [Unknown]
  - Product confusion [Unknown]
  - Product prescribing error [Unknown]
